FAERS Safety Report 17445614 (Version 1)
Quarter: 2020Q1

REPORT INFORMATION
  Report Type: Spontaneous
  Country: GB (occurrence: GB)
  Receive Date: 20200221
  Receipt Date: 20200221
  Transmission Date: 20200409
  Serious: Yes (Other)
  Sender: FDA-Public Use
  Company Number: GB-MYLANLABS-2020M1018452

PATIENT
  Age: 62 Year
  Sex: Female

DRUGS (9)
  1. CIMETIDINE [Suspect]
     Active Substance: CIMETIDINE
     Indication: ARTHRALGIA
  2. DICLOFENAC [Suspect]
     Active Substance: DICLOFENAC
     Indication: ARTHRALGIA
     Dosage: UNK
  3. PARACETAMOL [Suspect]
     Active Substance: ACETAMINOPHEN
     Indication: ARTHRALGIA
  4. CIMETIDINE [Suspect]
     Active Substance: CIMETIDINE
     Indication: OSTEOARTHRITIS
     Dosage: UNK
  5. CIPROFLOXACIN. [Suspect]
     Active Substance: CIPROFLOXACIN
     Indication: ARTHRALGIA
     Dosage: PART OF OTC ^HERBAL^ PREPARATION
  6. IBUPROFEN. [Suspect]
     Active Substance: IBUPROFEN
     Indication: ARTHRALGIA
     Dosage: PART OF OTC ^HERBAL^ PREPARATION
  7. PARACETAMOL [Suspect]
     Active Substance: ACETAMINOPHEN
     Indication: OSTEOARTHRITIS
     Dosage: PART OF OTC ^HERBAL^ PREPARATION
  8. DICLOFENAC [Suspect]
     Active Substance: DICLOFENAC
     Indication: OSTEOARTHRITIS
     Dosage: PART OF OTC ^HERBAL^ PREPARATION
  9. DEXAMETHASONE. [Suspect]
     Active Substance: DEXAMETHASONE
     Indication: OSTEOARTHRITIS
     Dosage: PART OF OTC ^HERBAL^ PREPARATION

REACTIONS (1)
  - Secondary adrenocortical insufficiency [Unknown]
